FAERS Safety Report 10170941 (Version 1)
Quarter: 2014Q2

REPORT INFORMATION
  Report Type: Spontaneous
  Country: US (occurrence: None)
  Receive Date: 20140513
  Receipt Date: 20140513
  Transmission Date: 20141212
  Serious: Yes (Other)
  Sender: FDA-Public Use
  Company Number: None

PATIENT
  Age: 58 Year
  Sex: Male
  Weight: 145.15 kg

DRUGS (5)
  1. TAMIFLU [Suspect]
     Indication: INFLUENZA
     Dosage: 10   1 CAPSULE  2X/DAY  BY MOUTH
     Route: 048
     Dates: start: 20140410, end: 20140412
  2. OMEPROZOL [Concomitant]
  3. MULTI [Concomitant]
  4. PROSTA-STRONG [Concomitant]
  5. FISH OIL [Concomitant]

REACTIONS (5)
  - Dizziness [None]
  - Nausea [None]
  - Syncope [None]
  - Neck injury [None]
  - Head injury [None]
